FAERS Safety Report 6141425-6 (Version None)
Quarter: 2009Q2

REPORT INFORMATION
  Report Type: 
  Country: None (occurrence: None)
  Receive Date: 20090402
  Receipt Date: 20090324
  Transmission Date: 20091009
  Serious: Yes (Hospitalization, Other)
  Sender: FDA-Public Use
  Company Number: DE-ABBOTT-09P-062-0564706-00

PATIENT
  Age: 44 Year
  Sex: Female
  Weight: 75 kg

DRUGS (3)
  1. HUMIRA [Suspect]
     Indication: PSORIATIC ARTHROPATHY
     Dosage: INITIALLY EOW, IN DEC 2008 REDUCTION TO 3-WEEKLY
     Route: 058
     Dates: start: 20081201
  2. HUMIRA [Suspect]
     Route: 058
     Dates: start: 20080710, end: 20081201
  3. METHOTREXATE [Concomitant]
     Indication: DRUG USE FOR UNKNOWN INDICATION
     Dates: start: 20070901, end: 20080601

REACTIONS (2)
  - HEPATITIS [None]
  - TENDONITIS [None]
